FAERS Safety Report 5479478-0 (Version None)
Quarter: 2007Q4

REPORT INFORMATION
  Report Type: 
  Country: None (occurrence: None)
  Receive Date: 20071008
  Receipt Date: 20070425
  Transmission Date: 20080405
  Serious: Yes (Life-Threatening, Hospitalization)
  Sender: FDA-Public Use
  Company Number: AT-ASTRAZENECA-2005PK01777

PATIENT
  Age: 7471 Day
  Sex: Female
  Weight: 55 kg

DRUGS (2)
  1. SEROQUEL [Suspect]
     Indication: BIPOLAR DISORDER
     Route: 048
     Dates: start: 20050919
  2. SEROQUEL [Suspect]
     Route: 048
     Dates: start: 20050920

REACTIONS (6)
  - COMA [None]
  - DRUG TOXICITY [None]
  - OVERDOSE [None]
  - RHABDOMYOLYSIS [None]
  - STATUS EPILEPTICUS [None]
  - SUICIDE ATTEMPT [None]
